FAERS Safety Report 14390894 (Version 1)
Quarter: 2018Q1

REPORT INFORMATION
  Report Type: Spontaneous
  Country: US (occurrence: US)
  Receive Date: 20180116
  Receipt Date: 20180116
  Transmission Date: 20180509
  Serious: No
  Sender: FDA-Public Use
  Company Number: US-LUPIN PHARMACEUTICALS INC.-E2B_00007488

PATIENT
  Age: 1 Year
  Sex: Male
  Weight: 10.89 kg

DRUGS (2)
  1. CEFDINIR FOR ORAL SUSPENSION USP 125 MG/5 ML [Suspect]
     Active Substance: CEFDINIR
     Indication: EAR INFECTION
     Dosage: 125 MG,QD,
     Route: 048
     Dates: start: 20170204, end: 20170214
  2. CEFDINIR FOR ORAL SUSPENSION USP 125 MG/5 ML [Suspect]
     Active Substance: CEFDINIR
     Dosage: 125 MG/5 ML TWICE IN A DAY
     Route: 048
     Dates: start: 20170216

REACTIONS (3)
  - Ear pain [Not Recovered/Not Resolved]
  - Constipation [Not Recovered/Not Resolved]
  - Discomfort [Not Recovered/Not Resolved]

NARRATIVE: CASE EVENT DATE: 20170204
